FAERS Safety Report 8924301 (Version 2)
Quarter: 2012Q4

REPORT INFORMATION
  Report Type: 
  Country: FR (occurrence: FR)
  Receive Date: 20121126
  Receipt Date: 20121129
  Transmission Date: 20130627
  Serious: Yes (Hospitalization)
  Sender: FDA-Public Use
  Company Number: FR-GLAXOSMITHKLINE-B0844302A

PATIENT
  Age: 60 None
  Sex: Male

DRUGS (9)
  1. ZOPHREN [Suspect]
     Indication: PREMEDICATION
     Dosage: 8MG Unknown
     Route: 042
     Dates: start: 20120711, end: 20120829
  2. GEMZAR [Suspect]
     Indication: PRODUCT USED FOR UNKNOWN INDICATION
     Dosage: 2400MG Unknown
     Route: 042
     Dates: start: 20120711, end: 20120829
  3. CISPLATINE [Suspect]
     Indication: PRODUCT USED FOR UNKNOWN INDICATION
     Dosage: 140MG Unknown
     Route: 042
     Dates: start: 20120711, end: 20120801
  4. EMEND [Suspect]
     Indication: PREMEDICATION
     Dosage: 80MG Per day
     Route: 048
     Dates: start: 20120711, end: 20120801
  5. SOLUMEDROL(METHYLPREDNISOLONE SODIUM SUCCINATE) INFUSION [Suspect]
     Indication: PREMEDICATION
     Dosage: 80MG Per day
     Route: 042
     Dates: start: 20120711, end: 20120801
  6. LYRICA [Suspect]
     Indication: PRODUCT USED FOR UNKNOWN INDICATION
     Route: 048
     Dates: end: 20120907
  7. CRESTOR [Concomitant]
     Dosage: 5MG Per day
     Route: 048
  8. TRIATEC [Concomitant]
     Dosage: 5MG Per day
     Route: 048
  9. PANTOPRAZOLE [Concomitant]
     Dosage: 40MG Per day
     Route: 048

REACTIONS (10)
  - Lung disorder [Recovering/Resolving]
  - Dyspnoea [Unknown]
  - Asthenia [Unknown]
  - Decreased appetite [Unknown]
  - Tachypnoea [Unknown]
  - Tachycardia [Unknown]
  - Inflammation [Unknown]
  - Chest X-ray abnormal [Unknown]
  - Pulmonary embolism [Unknown]
  - Septic shock [Unknown]
